FAERS Safety Report 15687357 (Version 2)
Quarter: 2019Q1

REPORT INFORMATION
  Report Type: Report from Study
  Country: US (occurrence: US)
  Receive Date: 20181205
  Receipt Date: 20190330
  Transmission Date: 20190417
  Serious: Yes (Death, Life-Threatening, Hospitalization, Other)
  Sender: FDA-Public Use
  Company Number: PHHY2017US177182

PATIENT
  Age: 37 Year
  Sex: Male
  Weight: 68.44 kg

DRUGS (113)
  1. VORICONAZOLE. [Suspect]
     Active Substance: VORICONAZOLE
     Dosage: 300 MG, BID
     Route: 048
     Dates: start: 20171113
  2. CAYSTON [Suspect]
     Active Substance: AZTREONAM
     Dosage: 75 MG, TID ALTERNATE MONTHS
     Route: 065
     Dates: start: 20170918, end: 20171014
  3. CAYSTON [Suspect]
     Active Substance: AZTREONAM
     Dosage: 75 MG, TID ALTERNATE MONTHS
     Route: 055
     Dates: start: 20180113, end: 20180121
  4. BETHKIS [Suspect]
     Active Substance: TOBRAMYCIN
     Indication: CYSTIC FIBROSIS
     Dosage: UNK
     Route: 065
     Dates: start: 20171123, end: 20171128
  5. OXYGEN. [Concomitant]
     Active Substance: OXYGEN
     Dosage: 7 L, UNK
     Route: 045
     Dates: start: 201610, end: 20171104
  6. SEREVENT DISKUS [Concomitant]
     Active Substance: SALMETEROL XINAFOATE
     Indication: INFECTIVE PULMONARY EXACERBATION OF CYSTIC FIBROSIS
     Dosage: 50 UG, BID
     Route: 055
     Dates: start: 20151015, end: 20171128
  7. TOBI [Concomitant]
     Active Substance: TOBRAMYCIN
     Dosage: 300 MG, BID (SMALL VOLUME NEBULIZER)
     Route: 055
     Dates: start: 20180106, end: 20180113
  8. ALBUTEROL. [Concomitant]
     Active Substance: ALBUTEROL
     Indication: WHEEZING
  9. CIPRO [Concomitant]
     Active Substance: CIPROFLOXACIN HYDROCHLORIDE
     Dosage: UNK
     Route: 065
     Dates: start: 20160428, end: 20160507
  10. CHOLECALCIFEROL [Concomitant]
     Active Substance: CHOLECALCIFEROL
     Indication: VITAMIN D DEFICIENCY
     Dosage: 25 DROPS
     Dates: start: 20171216
  11. QVAR [Concomitant]
     Active Substance: BECLOMETHASONE DIPROPIONATE
     Indication: CYSTIC FIBROSIS
     Dosage: UNK
     Route: 065
     Dates: start: 20151104, end: 20170803
  12. VORICONAZOLE. [Suspect]
     Active Substance: VORICONAZOLE
     Dosage: 300 MG, BID (EVERY 12 HOURS)
     Route: 042
     Dates: start: 20171105, end: 20171113
  13. CAYSTON [Suspect]
     Active Substance: AZTREONAM
     Dosage: UNK
     Route: 065
     Dates: start: 20170722, end: 20170819
  14. BETHKIS [Suspect]
     Active Substance: TOBRAMYCIN
     Dosage: 300 MG/4ML, BID
     Route: 055
     Dates: start: 20180106, end: 20180113
  15. OXYGEN. [Concomitant]
     Active Substance: OXYGEN
     Indication: INFECTIVE PULMONARY EXACERBATION OF CYSTIC FIBROSIS
     Dosage: UNK
     Route: 065
     Dates: start: 20150713, end: 20161001
  16. BACTRIM DS [Concomitant]
     Active Substance: SULFAMETHOXAZOLE\TRIMETHOPRIM
     Indication: COUGH
  17. PRILOSEC [Concomitant]
     Active Substance: OMEPRAZOLE MAGNESIUM
     Indication: PRODUCT USED FOR UNKNOWN INDICATION
     Dosage: 20 MG, QD
     Route: 048
     Dates: start: 20160914, end: 20171104
  18. Z-MAX [Concomitant]
     Indication: INFLAMMATION
     Dosage: 500 MG, THRICE WEEKLY
     Route: 048
  19. ACTIGALL [Concomitant]
     Active Substance: URSODIOL
     Indication: CYSTIC FIBROSIS
     Dosage: 2 DF, BID
     Route: 048
  20. MIRALAX [Concomitant]
     Active Substance: POLYETHYLENE GLYCOL 3350
     Indication: PRODUCT USED FOR UNKNOWN INDICATION
     Dosage: 1 DF, QD
     Route: 048
  21. ATARAX [Concomitant]
     Active Substance: HYDROXYZINE HYDROCHLORIDE
     Dosage: 1 DF, TID
     Route: 048
  22. MINOCYCLINE [Concomitant]
     Active Substance: MINOCYCLINE\MINOCYCLINE HYDROCHLORIDE
     Indication: PRODUCT USED FOR UNKNOWN INDICATION
     Dosage: 100 MG, BID
     Route: 048
     Dates: start: 20180103, end: 20180107
  23. KEFLEX [Concomitant]
     Active Substance: CEPHALEXIN
     Indication: PRODUCT USED FOR UNKNOWN INDICATION
     Route: 065
  24. MIRALAX [Concomitant]
     Active Substance: POLYETHYLENE GLYCOL 3350
     Indication: INFECTIVE PULMONARY EXACERBATION OF CYSTIC FIBROSIS
     Dosage: 850 MG, QD
     Route: 048
     Dates: start: 20161206
  25. PULMICORT TURBUHALER [Concomitant]
     Active Substance: BUDESONIDE
     Indication: INFECTIVE PULMONARY EXACERBATION OF CYSTIC FIBROSIS
     Dosage: UNK
     Route: 065
     Dates: start: 20160222, end: 20171212
  26. ZYPREXA [Concomitant]
     Active Substance: OLANZAPINE
     Indication: ATTENTION DEFICIT/HYPERACTIVITY DISORDER
     Dosage: 5 MG, UNK
     Route: 048
     Dates: start: 20180103
  27. SINEQUAN [Concomitant]
     Active Substance: DOXEPIN HYDROCHLORIDE
     Indication: AGITATION
     Dosage: UNK
     Route: 065
     Dates: start: 20150312, end: 20161006
  28. OMEPRAZOLE. [Concomitant]
     Active Substance: OMEPRAZOLE
     Indication: CYSTIC FIBROSIS
     Dosage: UNK
     Route: 065
     Dates: start: 20140918, end: 20171128
  29. TOBI PODHALER [Suspect]
     Active Substance: TOBRAMYCIN
     Dosage: UNK
     Route: 055
     Dates: start: 20160823, end: 20160920
  30. TOBI PODHALER [Suspect]
     Active Substance: TOBRAMYCIN
     Dosage: UNK
     Route: 055
     Dates: start: 20161028, end: 20161124
  31. CAYSTON [Suspect]
     Active Substance: AZTREONAM
     Dosage: UNK
     Route: 065
     Dates: start: 20170527, end: 20170630
  32. BETHKIS [Suspect]
     Active Substance: TOBRAMYCIN
     Dosage: 300 MG, BID
     Route: 055
     Dates: start: 20171212, end: 20171219
  33. VANCOMYCIN [Suspect]
     Active Substance: VANCOMYCIN
     Indication: PRODUCT USED FOR UNKNOWN INDICATION
     Dosage: 1250 MG, Q8H
     Route: 042
     Dates: start: 20171104, end: 20171106
  34. LEVAQUIN [Concomitant]
     Active Substance: LEVOFLOXACIN
     Indication: COUGH
     Dosage: 750 MG, BID
     Route: 048
     Dates: start: 20171020, end: 20171108
  35. OXYGEN. [Concomitant]
     Active Substance: OXYGEN
     Dosage: UNK
     Route: 065
     Dates: start: 20161020, end: 20171108
  36. BACTRIM DS [Concomitant]
     Active Substance: SULFAMETHOXAZOLE\TRIMETHOPRIM
     Indication: BRONCHITIS
     Dosage: 800-160 MG, BID
     Route: 065
     Dates: start: 20170914, end: 20171104
  37. FLONASE [Concomitant]
     Active Substance: FLUTICASONE PROPIONATE
     Indication: CYSTIC FIBROSIS
     Dosage: UNK
     Route: 065
     Dates: start: 20151202, end: 20171215
  38. APRESOLINE HYDROCHLORIDE [Concomitant]
     Active Substance: HYDRALAZINE HYDROCHLORIDE
     Indication: PRODUCT USED FOR UNKNOWN INDICATION
     Dosage: UNK UNK, Q6H (0.5-1 ML)
     Route: 065
  39. TOBI [Concomitant]
     Active Substance: TOBRAMYCIN
     Indication: PRODUCT USED FOR UNKNOWN INDICATION
     Dosage: 300 MG, BID
     Route: 055
     Dates: start: 20171123, end: 20171220
  40. ORKAMBI [Concomitant]
     Active Substance: IVACAFTOR\LUMACAFTOR
     Indication: INFECTIVE PULMONARY EXACERBATION OF CYSTIC FIBROSIS
     Dosage: 2 DF, BID (200-125 MG)
     Route: 065
     Dates: start: 201706, end: 20171104
  41. LANTUS [Concomitant]
     Active Substance: INSULIN GLARGINE
     Indication: BLOOD GLUCOSE DECREASED
     Dosage: UNK
     Route: 065
     Dates: start: 20180119
  42. MUCOMYST [Concomitant]
     Active Substance: ACETYLCYSTEINE
     Indication: INFECTIVE PULMONARY EXACERBATION OF CYSTIC FIBROSIS
     Dosage: 2 ML, UNK
     Route: 055
     Dates: start: 20180124
  43. MICAFUNGIN. [Concomitant]
     Active Substance: MICAFUNGIN SODIUM
     Indication: FUNGAL INFECTION
  44. DOXEPIN [Concomitant]
     Active Substance: DOXEPIN
     Indication: ATTENTION DEFICIT/HYPERACTIVITY DISORDER
     Dosage: 25 MG, BID
     Route: 048
     Dates: start: 20171221
  45. VERAPAMIL [Concomitant]
     Active Substance: VERAPAMIL HYDROCHLORIDE
     Indication: HYPERTENSION
     Dosage: 120 MG, UNK
     Route: 042
     Dates: start: 20171225
  46. CALCIUM CARBONATE. [Concomitant]
     Active Substance: CALCIUM CARBONATE
     Indication: SUPPLEMENTATION THERAPY
     Dosage: UNK
     Route: 065
     Dates: start: 20110613, end: 20171128
  47. CAYSTON [Suspect]
     Active Substance: AZTREONAM
     Dosage: UNK
     Route: 065
     Dates: start: 20161125, end: 20161223
  48. AQUADEKS [Concomitant]
     Active Substance: MINERALS\VITAMINS
     Indication: CYSTIC FIBROSIS
     Dosage: UNK
     Route: 065
     Dates: start: 20130726, end: 20170512
  49. HYPERTONIC SALINE SOLUTION [Concomitant]
     Active Substance: SODIUM CHLORIDE
     Indication: COUGH
     Dosage: 70 %, QD
     Route: 065
     Dates: start: 20170512, end: 20171104
  50. CREON [Concomitant]
     Active Substance: PANCRELIPASE AMYLASE\PANCRELIPASE LIPASE\PANCRELIPASE PROTEASE
     Dosage: UNK
     Route: 065
     Dates: start: 20151209, end: 20171222
  51. MULTIVITAMINS [Concomitant]
     Active Substance: VITAMINS
     Indication: PRODUCT USED FOR UNKNOWN INDICATION
     Dosage: 1 DF, QD
     Route: 048
  52. MIRALAX [Concomitant]
     Active Substance: POLYETHYLENE GLYCOL 3350
     Dosage: 17 G, UNK
     Route: 048
     Dates: start: 20171215
  53. PULMOZYME [Concomitant]
     Active Substance: DORNASE ALFA
     Indication: INFECTIVE PULMONARY EXACERBATION OF CYSTIC FIBROSIS
     Dosage: 2.5 ML, QD
     Route: 055
     Dates: start: 20150708
  54. NORVASC [Concomitant]
     Active Substance: AMLODIPINE BESYLATE
     Indication: PRODUCT USED FOR UNKNOWN INDICATION
     Dosage: 5 MG, QD
     Route: 048
     Dates: start: 20170927, end: 20171128
  55. CIPRO [Concomitant]
     Active Substance: CIPROFLOXACIN HYDROCHLORIDE
     Dosage: UNK
     Route: 065
     Dates: start: 20160804, end: 20160813
  56. CIPRO [Concomitant]
     Active Substance: CIPROFLOXACIN HYDROCHLORIDE
     Dosage: 400 MG, TID
     Route: 042
     Dates: start: 20180121
  57. DOXYCYCLINE. [Concomitant]
     Active Substance: DOXYCYCLINE
     Indication: INFECTIVE PULMONARY EXACERBATION OF CYSTIC FIBROSIS
     Dosage: 100 MG, UNK (IV PIGGY BACK EVERY 12 HOURS)
     Route: 042
     Dates: start: 20180107
  58. TOBI PODHALER [Suspect]
     Active Substance: TOBRAMYCIN
     Indication: CYSTIC FIBROSIS
     Dosage: UNK
     Route: 055
     Dates: start: 20160223, end: 20160321
  59. TOBI PODHALER [Suspect]
     Active Substance: TOBRAMYCIN
     Dosage: UNK
     Route: 055
     Dates: start: 20170820, end: 20170916
  60. TOBI PODHALER [Suspect]
     Active Substance: TOBRAMYCIN
     Dosage: 112 MG, TID ALTERNATE MONTHS
     Route: 055
     Dates: start: 20171015, end: 20171104
  61. TOBI PODHALER [Suspect]
     Active Substance: TOBRAMYCIN
     Dosage: 112 MG, TID ALTERNATE MONTHS
     Route: 055
     Dates: start: 20171128, end: 20171212
  62. ZERBAXA [Concomitant]
     Active Substance: CEFTOLOZANE SULFATE\TAZOBACTAM SODIUM
     Indication: PRODUCT USED FOR UNKNOWN INDICATION
     Dosage: 1.5 G, UNK (IV PIGGY BACK INFUSED OVER 3 HOURS EVERY 8 HOURS)
     Route: 042
     Dates: start: 20171217, end: 20171218
  63. PROPOFOL. [Concomitant]
     Active Substance: PROPOFOL
     Indication: SEDATION
     Dosage: UNK
     Route: 065
     Dates: start: 20171213
  64. PROPOFOL. [Concomitant]
     Active Substance: PROPOFOL
     Dosage: UNK
     Route: 065
     Dates: start: 20180119
  65. TYLENOL [Concomitant]
     Active Substance: ACETAMINOPHEN
     Indication: PAIN
     Dosage: 1 DF, Q4H
     Route: 054
  66. PULMOZYME [Concomitant]
     Active Substance: DORNASE ALFA
     Dosage: 2.5 ML, QD
     Route: 055
     Dates: start: 20171212
  67. ALBUTEROL. [Concomitant]
     Active Substance: ALBUTEROL
     Indication: ASTHMA
     Dosage: 2.5 MG, PRN
     Route: 055
     Dates: start: 20170427, end: 20171104
  68. HUMALOG [Concomitant]
     Active Substance: INSULIN LISPRO
     Dosage: UNK, QID (0-6 UNITS)
     Route: 058
  69. HUMALOG [Concomitant]
     Active Substance: INSULIN LISPRO
     Dosage: ONE UNIT FOR EVERY 50MG/DL
     Route: 058
  70. PULMICORT TURBUHALER [Concomitant]
     Active Substance: BUDESONIDE
     Dosage: 0.5 MG, BID
     Route: 055
     Dates: start: 20171212
  71. CIPRO [Concomitant]
     Active Substance: CIPROFLOXACIN HYDROCHLORIDE
     Dosage: UNK
     Route: 065
     Dates: start: 20160520, end: 20160602
  72. LOVENOX [Concomitant]
     Active Substance: ENOXAPARIN SODIUM
     Indication: PROPHYLAXIS
     Dosage: 40 MG/0.4ML, UNK
     Route: 042
     Dates: start: 20180123
  73. TOBI PODHALER [Suspect]
     Active Substance: TOBRAMYCIN
     Dosage: UNK
     Route: 055
     Dates: start: 20170219, end: 20170319
  74. CAYSTON [Suspect]
     Active Substance: AZTREONAM
     Indication: PRODUCT USED FOR UNKNOWN INDICATION
     Dosage: UNK
     Route: 065
     Dates: start: 20160725, end: 20160822
  75. CREON [Concomitant]
     Active Substance: PANCRELIPASE AMYLASE\PANCRELIPASE LIPASE\PANCRELIPASE PROTEASE
     Indication: CYSTIC FIBROSIS
     Dosage: UNK UNK, TID (TAKE 5 TO 6 CAPSULE CAPSULES BY MOUTH 3 TIMES A DAY WITH MEALS AND 5 WITH SNACKS (AVE)
     Route: 048
     Dates: start: 20151209, end: 20160804
  76. TYLENOL [Concomitant]
     Active Substance: ACETAMINOPHEN
     Indication: PAIN
     Dosage: 2 DF (325 MG), UNK
     Route: 048
  77. VITAMIIN C [Concomitant]
     Active Substance: ASCORBIC ACID
     Indication: NUTRITIONAL SUPPLEMENTATION
     Dosage: 1 DF, QD
     Route: 048
     Dates: start: 20110613, end: 20171215
  78. CALCARB [Concomitant]
     Indication: SUPPLEMENTATION THERAPY
     Dosage: 600 OT, BID
     Route: 048
     Dates: start: 20110613
  79. LISPRO INSULIN [Concomitant]
     Active Substance: INSULIN LISPRO
     Indication: BLOOD GLUCOSE DECREASED
     Dosage: 18 U, UNK
     Route: 058
     Dates: start: 20171229
  80. HUMALOG [Concomitant]
     Active Substance: INSULIN LISPRO
     Indication: BLOOD GLUCOSE DECREASED
     Dosage: 18 U, UNK
     Route: 058
     Dates: start: 20171229
  81. CEFTAZIDIME. [Concomitant]
     Active Substance: CEFTAZIDIME
     Indication: INFECTIVE PULMONARY EXACERBATION OF CYSTIC FIBROSIS
     Dosage: 4 G, UNK (PIGGY BACK INFUSED OVER 3 HOURS EVERY 8 HOURS)
     Route: 042
     Dates: start: 20180107
  82. CIPRO [Concomitant]
     Active Substance: CIPROFLOXACIN HYDROCHLORIDE
     Indication: INFECTIVE PULMONARY EXACERBATION OF CYSTIC FIBROSIS
     Dosage: UNK
     Route: 065
     Dates: start: 20160303, end: 20160313
  83. MICAFUNGIN. [Concomitant]
     Active Substance: MICAFUNGIN SODIUM
     Indication: CYSTIC FIBROSIS
     Dosage: 100 MG, UNK (IV PIGGY BACK DAILY)
     Route: 042
     Dates: start: 20180120
  84. NAFCILLIN [Concomitant]
     Active Substance: NAFCILLIN\NAFCILLIN SODIUM
     Indication: CYSTIC FIBROSIS
     Dosage: UNK
     Route: 065
     Dates: start: 20160701, end: 20160707
  85. LEXAPRO [Concomitant]
     Active Substance: ESCITALOPRAM OXALATE
     Indication: AGITATION
     Dosage: UNK
     Route: 065
     Dates: start: 20160906, end: 20170504
  86. TOBI PODHALER [Suspect]
     Active Substance: TOBRAMYCIN
     Indication: PSEUDOMONAS INFECTION
     Dosage: UNK
     Route: 055
     Dates: start: 20160420, end: 20160517
  87. VORICONAZOLE. [Suspect]
     Active Substance: VORICONAZOLE
     Dosage: 260 MG, Q12H
     Route: 042
     Dates: start: 20171213, end: 20180102
  88. DELTASONE [Concomitant]
     Active Substance: PREDNISONE
     Indication: INFECTIVE PULMONARY EXACERBATION OF CYSTIC FIBROSIS
     Dosage: 5 MG, UNK
     Route: 048
     Dates: start: 20170927, end: 20171105
  89. BACITRACIN. [Concomitant]
     Active Substance: BACITRACIN
     Indication: NASAL DISCOMFORT
     Dosage: UNK UNK, BID
     Route: 065
  90. FLONASE [Concomitant]
     Active Substance: FLUTICASONE PROPIONATE
     Dosage: 16 G (50UG), QHS
     Route: 055
  91. ROCURONIUM [Concomitant]
     Active Substance: ROCURONIUM BROMIDE
     Indication: SEDATION
     Dosage: UNK
     Route: 065
     Dates: start: 20171213
  92. ALBUTEROL. [Concomitant]
     Active Substance: ALBUTEROL
     Indication: CYSTIC FIBROSIS
  93. ZITHROMAX [Concomitant]
     Active Substance: AZITHROMYCIN DIHYDRATE
     Dosage: 500 MG, QOD (MONDAY, WEDNESDAY AND FRIDAY)
     Route: 048
     Dates: start: 20171229
  94. K-DUR [Concomitant]
     Active Substance: POTASSIUM CHLORIDE
     Indication: SUPPLEMENTATION THERAPY
     Dosage: 60 MG, FEEDING TUBE
     Route: 065
     Dates: start: 20180120
  95. LANTUS [Concomitant]
     Active Substance: INSULIN GLARGINE
     Dosage: 60 U, UNK
     Route: 058
     Dates: start: 20180124
  96. HUMALOG [Concomitant]
     Active Substance: INSULIN LISPRO
     Dosage: UNK
     Route: 065
     Dates: start: 20180106
  97. DUONEB [Concomitant]
     Active Substance: ALBUTEROL SULFATE\IPRATROPIUM BROMIDE
     Indication: INFECTIVE PULMONARY EXACERBATION OF CYSTIC FIBROSIS
     Dosage: 3 ML (2.5 -0.5MG/3ML), UNK
     Route: 055
     Dates: start: 20171211
  98. DUONEB [Concomitant]
     Active Substance: ALBUTEROL SULFATE\IPRATROPIUM BROMIDE
     Dosage: 3 ML (2.5-0.5 MG/3 ML), Q8H
     Route: 055
     Dates: start: 20180124
  99. DUONEB [Concomitant]
     Active Substance: ALBUTEROL SULFATE\IPRATROPIUM BROMIDE
     Dosage: UNK
     Route: 065
     Dates: start: 20180102
  100. CLONIDINE. [Concomitant]
     Active Substance: CLONIDINE
     Indication: SEDATION
     Dosage: 0.3 MG, UNK
     Route: 048
     Dates: start: 20171221
  101. SODIUM CHLORIDE. [Concomitant]
     Active Substance: SODIUM CHLORIDE
     Indication: CYSTIC FIBROSIS
     Dosage: UNK
     Route: 065
     Dates: start: 20160218, end: 20180113
  102. VORICONAZOLE. [Suspect]
     Active Substance: VORICONAZOLE
     Indication: PRODUCT USED FOR UNKNOWN INDICATION
     Dosage: 450 MG, BID (EVERY 12 HOURS)
     Route: 042
     Dates: start: 20171104, end: 20171105
  103. ACTIGALL [Concomitant]
     Active Substance: URSODIOL
     Dosage: UNK
     Route: 065
     Dates: start: 20151015, end: 20171212
  104. PROBIOTIC [Concomitant]
     Active Substance: PROBIOTICS NOS
     Indication: PRODUCT USED FOR UNKNOWN INDICATION
     Dosage: 1 DF, BID (WITH BREAKFAST AND DINNER)
     Route: 048
  105. L-METHYLFOLATE [Concomitant]
     Active Substance: LEVOMEFOLIC ACID
     Indication: PRODUCT USED FOR UNKNOWN INDICATION
     Dosage: 7.5 MG, QD
     Route: 048
  106. ATARAX [Concomitant]
     Active Substance: HYDROXYZINE HYDROCHLORIDE
     Indication: CYSTIC FIBROSIS
     Dosage: UNK
     Route: 065
     Dates: start: 20150921, end: 20171213
  107. ALBUTEROL. [Concomitant]
     Active Substance: ALBUTEROL
     Indication: COUGH
  108. ZITHROMAX [Concomitant]
     Active Substance: AZITHROMYCIN DIHYDRATE
     Indication: INFECTIVE PULMONARY EXACERBATION OF CYSTIC FIBROSIS
     Dosage: 250 MG, MWF
     Route: 048
     Dates: start: 20151001, end: 20171104
  109. VERSED [Concomitant]
     Active Substance: MIDAZOLAM HYDROCHLORIDE
     Indication: SEDATION
     Dosage: 2 MG, HR
     Route: 042
     Dates: start: 20180124
  110. CHOLECALCIFEROL [Concomitant]
     Active Substance: CHOLECALCIFEROL
     Indication: VITAMIN D DEFICIENCY
     Dosage: UNK UNK, QD (10,000 UNITS)
     Route: 048
  111. URSODIOL. [Concomitant]
     Active Substance: URSODIOL
     Indication: INFECTIVE PULMONARY EXACERBATION OF CYSTIC FIBROSIS
     Dosage: 500 MG, UNK
     Route: 048
     Dates: start: 20171211
  112. OMEPRAZOLE. [Concomitant]
     Active Substance: OMEPRAZOLE
     Dosage: UNK
     Route: 065
     Dates: start: 20180119, end: 20180119
  113. SODIUM CHLORIDE. [Concomitant]
     Active Substance: SODIUM CHLORIDE
     Indication: PRODUCT USED FOR UNKNOWN INDICATION
     Dosage: UNK
     Route: 065
     Dates: start: 20180119, end: 20180119

REACTIONS (74)
  - Dyspnoea [Fatal]
  - Cough [Recovered/Resolved]
  - Metabolic acidosis [Recovered/Resolved]
  - Generalised oedema [Recovered/Resolved]
  - Glucose tolerance impaired [Unknown]
  - Infective exacerbation of bronchiectasis [Recovered/Resolved]
  - Bronchial haemorrhage [Recovered/Resolved]
  - Haemoptysis [Recovered/Resolved]
  - Hypervolaemia [Recovered/Resolved]
  - Pyrexia [Fatal]
  - Respiratory failure [Recovered/Resolved]
  - Fungal disease carrier [Unknown]
  - Gastroenteritis norovirus [Recovered/Resolved]
  - Ill-defined disorder [Unknown]
  - Diarrhoea [Recovered/Resolved]
  - Bandaemia [Unknown]
  - Cystic fibrosis [Fatal]
  - Acute kidney injury [Recovered/Resolved]
  - Tachycardia [Unknown]
  - Cough [Unknown]
  - Blood creatinine increased [Recovered/Resolved]
  - Haemoptysis [Recovered/Resolved]
  - Hypertension [Recovered/Resolved]
  - Pneumonia [Recovered/Resolved]
  - Hypercapnia [Recovered/Resolved]
  - Dysphagia [Recovered/Resolved]
  - Leukocytosis [Unknown]
  - Thrombocytosis [Recovered/Resolved]
  - Muscle atrophy [Unknown]
  - Iron deficiency [Recovered/Resolved]
  - Respiratory failure [Recovered/Resolved]
  - Infective pulmonary exacerbation of cystic fibrosis [Unknown]
  - Infective pulmonary exacerbation of cystic fibrosis [Recovered/Resolved]
  - Infective pulmonary exacerbation of cystic fibrosis [Recovered/Resolved]
  - Stenotrophomonas test positive [Unknown]
  - Hypercapnia [Recovered/Resolved]
  - Haemoptysis [Recovered/Resolved]
  - Metabolic acidosis [Recovered/Resolved]
  - Hypertriglyceridaemia [Recovered/Resolved]
  - Gastrointestinal disorder [Fatal]
  - Sepsis [Recovered/Resolved]
  - Constipation [Recovered/Resolved]
  - Asthenia [Not Recovered/Not Resolved]
  - Anaemia [Unknown]
  - Concomitant disease aggravated [Unknown]
  - Sepsis [Unknown]
  - Respiratory failure [Recovered/Resolved]
  - Hypokalaemia [Recovered/Resolved]
  - Haematuria [Recovered/Resolved]
  - Acute respiratory distress syndrome [Fatal]
  - Alkalosis hypochloraemic [Recovered/Resolved]
  - Paresis [Recovered/Resolved]
  - Haemoptysis [Unknown]
  - Granulocytosis [Unknown]
  - Hyperglycaemia [Unknown]
  - Blood urea increased [Unknown]
  - Pneumonia [Recovered/Resolved]
  - Infective pulmonary exacerbation of cystic fibrosis [Recovered/Resolved]
  - Glucose tolerance impaired [Unknown]
  - Insomnia [Unknown]
  - Bronchitis chronic [Fatal]
  - Intensive care unit acquired weakness [Unknown]
  - Pneumonia [Recovered/Resolved]
  - Infective pulmonary exacerbation of cystic fibrosis [Recovered/Resolved]
  - Infective pulmonary exacerbation of cystic fibrosis [Recovered/Resolved]
  - Haemoptysis [Recovered/Resolved]
  - Acidosis [Recovered/Resolved]
  - Weight decreased [Recovered/Resolved]
  - Hypoxia [Recovered/Resolved]
  - Hypertension [Unknown]
  - Infective pulmonary exacerbation of cystic fibrosis [Recovered/Resolved]
  - Infective pulmonary exacerbation of cystic fibrosis [Unknown]
  - Infective pulmonary exacerbation of cystic fibrosis [Recovered/Resolved]
  - Hypernatraemia [Recovered/Resolved]

NARRATIVE: CASE EVENT DATE: 20160303
